FAERS Safety Report 8774796 (Version 2)
Quarter: 2012Q4

REPORT INFORMATION
  Report Type: 
  Country: US (occurrence: US)
  Receive Date: 20120910
  Receipt Date: 20121019
  Transmission Date: 20130627
  Serious: Yes (Hospitalization)
  Sender: FDA-Public Use
  Company Number: US-BAYER-2012-093374

PATIENT
  Age: 30 Year
  Sex: Female

DRUGS (2)
  1. OCELLA [Suspect]
     Dosage: 1 tablet every day
     Route: 048
  2. CITALOPRAM HYDROBROMIDE [Concomitant]
     Dosage: 20 mg, everyday
     Route: 048

REACTIONS (1)
  - Deep vein thrombosis [None]
